FAERS Safety Report 8943029 (Version 1)
Quarter: 2012Q4

REPORT INFORMATION
  Report Type: 
  Country: US (occurrence: US)
  Receive Date: 20121204
  Receipt Date: 20121204
  Transmission Date: 20130627
  Serious: No
  Sender: FDA-Public Use
  Company Number: US-BAYER-2012-118417

PATIENT
  Age: 18 Year
  Sex: Female

DRUGS (10)
  1. BETASERON [Suspect]
     Dosage: 0.25 mg, QOD
     Route: 058
  2. BETASERON [Suspect]
     Dosage: 0.25 mg, QOD
     Route: 058
  3. ATIVAN [Concomitant]
     Dosage: 0.5 mg, UNK
  4. AMANTADINE [Concomitant]
     Dosage: 100 mg, UNK
  5. SINGULAIR [Concomitant]
     Dosage: 10 mg, UNK
  6. VITAMIN B12 [Concomitant]
     Dosage: 500 ?g, UNK
  7. FISH OIL [Concomitant]
  8. VITAMIN E [Concomitant]
     Dosage: 100 u, UNK
  9. TYLENOL [PARACETAMOL] [Concomitant]
     Dosage: 25-500 mg, UNK
  10. GABAPENTIN [Concomitant]
     Dosage: 600 mg, UNK

REACTIONS (3)
  - Nausea [Unknown]
  - Vomiting [Unknown]
  - Dizziness [Unknown]
